FAERS Safety Report 11189801 (Version 1)
Quarter: 2015Q2

REPORT INFORMATION
  Report Type: Spontaneous
  Country: NO (occurrence: NO)
  Receive Date: 20150615
  Receipt Date: 20150615
  Transmission Date: 20150821
  Serious: Yes (Other)
  Sender: FDA-Public Use
  Company Number: NO-JNJFOC-20150607147

PATIENT
  Age: 39 Year
  Sex: Female

DRUGS (2)
  1. SIMPONI [Suspect]
     Active Substance: GOLIMUMAB
     Indication: COLITIS ULCERATIVE
     Route: 058
     Dates: start: 201409
  2. ASACOL [Concomitant]
     Active Substance: MESALAMINE
     Route: 065

REACTIONS (1)
  - Precancerous cells present [Not Recovered/Not Resolved]

NARRATIVE: CASE EVENT DATE: 201503
